FAERS Safety Report 23968702 (Version 2)
Quarter: 2024Q2

REPORT INFORMATION
  Report Type: Spontaneous
  Country: US (occurrence: US)
  Receive Date: 20240612
  Receipt Date: 20240621
  Transmission Date: 20240715
  Serious: No
  Sender: FDA-Public Use
  Company Number: US-KYOWAKIRIN-2024KK014047

PATIENT

DRUGS (2)
  1. CRYSVITA [Suspect]
     Active Substance: BUROSUMAB-TWZA
     Indication: Hereditary hypophosphataemic rickets
     Dosage: 10 MG, 1X/2 WEEKS (UNDER THE SKIN)
     Route: 058
  2. CRYSVITA [Suspect]
     Active Substance: BUROSUMAB-TWZA
     Dosage: UNK
     Route: 065
     Dates: start: 20240606

REACTIONS (3)
  - Epistaxis [Recovered/Resolved]
  - Malaise [Unknown]
  - Constipation [Unknown]

NARRATIVE: CASE EVENT DATE: 20240601
